FAERS Safety Report 5936813-4 (Version None)
Quarter: 2008Q4

REPORT INFORMATION
  Report Type: 
  Country: None (occurrence: None)
  Receive Date: 20081029
  Receipt Date: 20081016
  Transmission Date: 20090506
  Serious: Yes (Hospitalization)
  Sender: FDA-Public Use
  Company Number: 230268K08USA

PATIENT
  Age: 38 Year
  Sex: Female
  Weight: 48 kg

DRUGS (6)
  1. REBIF [Suspect]
     Indication: MULTIPLE SCLEROSIS
     Dosage: 44 MCG, 3 IN 1 WEEKS, SUBCUTANEOUS
     Route: 058
     Dates: start: 20020531
  2. NEXIUM [Concomitant]
  3. BACLOFEN [Concomitant]
  4. NEURONTIN [Concomitant]
  5. ZYRTEC [Concomitant]
  6. LORAZEPAM [Concomitant]

REACTIONS (3)
  - INFLUENZA LIKE ILLNESS [None]
  - PANCREATITIS [None]
  - PROTEIN TOTAL DECREASED [None]
